FAERS Safety Report 7601758-0 (Version None)
Quarter: 2011Q3

REPORT INFORMATION
  Report Type: 
  Country: None (occurrence: None)
  Receive Date: 20110711
  Receipt Date: 20110706
  Transmission Date: 20111222
  Serious: No
  Sender: FDA-Public Use
  Company Number: US-TEVA-289438USA

PATIENT
  Sex: Male
  Weight: 88.53 kg

DRUGS (1)
  1. PROAIR HFA [Suspect]
     Route: 055
     Dates: start: 20110629

REACTIONS (1)
  - DRUG EFFECT DECREASED [None]
